FAERS Safety Report 7573970 (Version 4)
Quarter: 2014Q3

REPORT INFORMATION
  Report Type: Spontaneous
  Country: DE (occurrence: DE)
  Receive Date: 20100907
  Receipt Date: 20140729
  Transmission Date: 20150326
  Serious: Yes (Hospitalization)
  Sender: FDA-Public Use
  Company Number: DE-RANBAXY-2010RR-37837

PATIENT
  Age: 76 Year
  Sex: Male
  Weight: 80 kg

DRUGS (9)
  1. MESTINON RETARD [Concomitant]
     Indication: MUSCULAR WEAKNESS
     Dosage: 1/4 OF THE INITIAL DOSE
     Route: 065
     Dates: start: 20100613
  2. PREDNISOLONE. [Suspect]
     Active Substance: PREDNISOLONE
     Indication: MUSCULAR WEAKNESS
     Dosage: 5 MG, QD
     Route: 048
     Dates: start: 201003
  3. MESTINON RETARD [Concomitant]
     Indication: MUSCULAR WEAKNESS
     Dosage: 20 MG/DAY
     Route: 065
  4. AZATHIOPRINE. [Suspect]
     Active Substance: AZATHIOPRINE
     Indication: MUSCULAR WEAKNESS
     Dosage: 25 MG, BID
     Route: 048
     Dates: start: 201001, end: 20100607
  5. OMEPRAZOL [Concomitant]
     Active Substance: OMEPRAZOLE
     Indication: PROPHYLAXIS AGAINST GASTROINTESTINAL ULCER
     Dosage: 20 MG, QD
     Route: 048
     Dates: start: 2008
  6. CLINDAMYCIN [Suspect]
     Active Substance: CLINDAMYCIN\CLINDAMYCIN PHOSPHATE
     Indication: TOOTH INFECTION
     Dosage: 600 MG, TID
     Route: 048
     Dates: start: 20100524, end: 20100530
  7. MESTINON [Suspect]
     Active Substance: PYRIDOSTIGMINE BROMIDE
     Indication: MUSCULAR WEAKNESS
     Dosage: 90 MG, BID
     Route: 048
     Dates: start: 201003, end: 20100612
  8. TAMSULOSIN [Concomitant]
     Active Substance: TAMSULOSIN
     Indication: BENIGN PROSTATIC HYPERPLASIA
     Dosage: 0.4 MG, QD
     Route: 048
     Dates: start: 2004
  9. FENTANYL. [Concomitant]
     Active Substance: FENTANYL
     Indication: PAIN
     Dosage: 5.78 MG, TID
     Route: 062
     Dates: start: 2009

REACTIONS (5)
  - Drug interaction [Recovering/Resolving]
  - Vomiting [None]
  - Diarrhoea [Recovering/Resolving]
  - Abdominal pain [None]
  - Gastrointestinal disorder [None]

NARRATIVE: CASE EVENT DATE: 20100601
